APPROVED DRUG PRODUCT: OXYCODONE AND ACETAMINOPHEN
Active Ingredient: ACETAMINOPHEN; OXYCODONE HYDROCHLORIDE
Strength: 325MG;7.5MG
Dosage Form/Route: TABLET;ORAL
Application: A201972 | Product #003 | TE Code: AA
Applicant: AUROLIFE PHARMA LLC
Approved: Jul 15, 2013 | RLD: No | RS: No | Type: RX